FAERS Safety Report 5093598-4 (Version None)
Quarter: 2006Q3

REPORT INFORMATION
  Report Type: 
  Country: None (occurrence: None)
  Receive Date: 20060829
  Receipt Date: 20060817
  Transmission Date: 20061208
  Serious: Yes (Life-Threatening, Hospitalization)
  Sender: FDA-Public Use
  Company Number: T200600909

PATIENT
  Age: 62 Year
  Sex: Female

DRUGS (2)
  1. OPTIRAY 300 [Suspect]
     Indication: UROGRAM
     Dosage: 100 ML, SINGLE, INTRAVENOUS
     Route: 042
     Dates: start: 20060808, end: 20060808
  2. BENADRYL [Concomitant]

REACTIONS (7)
  - ANAPHYLACTIC SHOCK [None]
  - DRUG HYPERSENSITIVITY [None]
  - DYSGEUSIA [None]
  - EYE ROLLING [None]
  - LOSS OF CONSCIOUSNESS [None]
  - NERVOUSNESS [None]
  - RESPIRATORY ARREST [None]
